FAERS Safety Report 4795559-9 (Version None)
Quarter: 2005Q3

REPORT INFORMATION
  Report Type: 
  Country: None (occurrence: None)
  Receive Date: 20050916
  Receipt Date: 20050718
  Transmission Date: 20060218
  Serious: Yes (Other)
  Sender: FDA-Public Use
  Company Number: US-JNJFOC-20050504844

PATIENT
  Age: 33 Year
  Sex: Female
  Weight: 70.3075 kg

DRUGS (1)
  1. TOPAMAX [Suspect]
     Indication: MIGRAINE PROPHYLAXIS
     Dosage: 25MG, 1 IN 1 DAY; ORAL
     Route: 048
     Dates: start: 20050505

REACTIONS (2)
  - GLAUCOMA [None]
  - MYOPIA [None]
